FAERS Safety Report 10146188 (Version 1)
Quarter: 2014Q2

REPORT INFORMATION
  Report Type: Spontaneous
  Country: GR (occurrence: GR)
  Receive Date: 20140501
  Receipt Date: 20140501
  Transmission Date: 20141212
  Serious: Yes (Hospitalization)
  Sender: FDA-Public Use
  Company Number: GR-NOVOPROD-408465

PATIENT
  Age: 3 Month
  Sex: Female
  Weight: 1.8 kg

DRUGS (4)
  1. PROTAPHANE PENFILL [Suspect]
     Indication: GESTATIONAL DIABETES
     Dosage: 10 IU, QD
     Route: 064
     Dates: start: 20131009
  2. PROTAPHANE PENFILL [Suspect]
     Indication: GESTATIONAL DIABETES
     Dosage: 10 IU, QD
     Route: 064
     Dates: start: 20131009
  3. PROTAPHANE PENFILL [Suspect]
     Dosage: 20 IU, QD
     Route: 064
  4. PROTAPHANE PENFILL [Suspect]
     Dosage: 20 IU, QD
     Route: 064

REACTIONS (3)
  - Foetal growth restriction [Recovered/Resolved]
  - Premature baby [Recovered/Resolved]
  - Foetal exposure during pregnancy [Recovered/Resolved]
